FAERS Safety Report 4322841-1 (Version None)
Quarter: 2004Q1

REPORT INFORMATION
  Report Type: 
  Country: None (occurrence: None)
  Receive Date: 20040324
  Receipt Date: 20040217
  Transmission Date: 20041129
  Serious: Yes (Other)
  Sender: FDA-Public Use
  Company Number: PHNU2004DE00925

PATIENT
  Age: 23 Year
  Sex: Male
  Weight: 105 kg

DRUGS (1)
  1. LAMISIL [Suspect]
     Dosage: 250 MG, QD
     Route: 048

REACTIONS (2)
  - BLOOD CREATINE PHOSPHOKINASE INCREASED [None]
  - PAIN IN EXTREMITY [None]
